FAERS Safety Report 8053411-X (Version None)
Quarter: 2012Q1

REPORT INFORMATION
  Report Type: 
  Country: None (occurrence: None)
  Receive Date: 20120118
  Receipt Date: 20111024
  Transmission Date: 20120608
  Serious: Yes (Other)
  Sender: FDA-Public Use
  Company Number: US-GLAXOSMITHKLINE-A0950265A

PATIENT
  Sex: Female

DRUGS (4)
  1. LAMICTAL [Suspect]
     Indication: DEPRESSION
     Dosage: 100MG PER DAY
     Route: 048
     Dates: start: 20110101
  2. KLONOPIN [Suspect]
  3. VILAZODONE [Concomitant]
  4. EFFEXOR [Suspect]
     Dates: start: 20110601, end: 20110721

REACTIONS (12)
  - ALTERED VISUAL DEPTH PERCEPTION [None]
  - BACK PAIN [None]
  - INSOMNIA [None]
  - ASPARTATE AMINOTRANSFERASE INCREASED [None]
  - DECREASED APPETITE [None]
  - VISUAL IMPAIRMENT [None]
  - VISION BLURRED [None]
  - DIPLOPIA [None]
  - AGEUSIA [None]
  - WHITE BLOOD CELL COUNT DECREASED [None]
  - WEIGHT DECREASED [None]
  - ALANINE AMINOTRANSFERASE INCREASED [None]
